FAERS Safety Report 4300776-8 (Version None)
Quarter: 2004Q1

REPORT INFORMATION
  Report Type: 
  Country: None (occurrence: None)
  Receive Date: 20040218
  Receipt Date: 20040203
  Transmission Date: 20041129
  Serious: Yes (Hospitalization)
  Sender: FDA-Public Use
  Company Number: 2003IM000820

PATIENT
  Age: 51 Year
  Sex: Male
  Weight: 97.7502 kg

DRUGS (3)
  1. ACTIMMUNE [Suspect]
     Indication: HEPATIC CIRRHOSIS
     Dosage: 200 UG;TIW;SUBCUTANEOUS
     Route: 058
     Dates: start: 20021009
  2. ACTIMMUNE [Suspect]
     Indication: HEPATIC FIBROSIS
     Dosage: 200 UG;TIW;SUBCUTANEOUS
     Route: 058
     Dates: start: 20021009
  3. ACTIMMUNE [Suspect]
     Indication: HEPATITIS C VIRUS
     Dosage: 200 UG;TIW;SUBCUTANEOUS
     Route: 058
     Dates: start: 20021009

REACTIONS (7)
  - BACTERAEMIA [None]
  - FEBRILE NEUTROPENIA [None]
  - NEPHROLITHIASIS [None]
  - PHARYNGOLARYNGEAL PAIN [None]
  - PORTAL HYPERTENSION [None]
  - SPLENOMEGALY [None]
  - X-RAY ABNORMAL [None]
